FAERS Safety Report 10069066 (Version 1)
Quarter: 2014Q2

REPORT INFORMATION
  Report Type: Spontaneous
  Country: BR (occurrence: BR)
  Receive Date: 20140409
  Receipt Date: 20140409
  Transmission Date: 20141212
  Serious: Yes (Other)
  Sender: FDA-Public Use
  Company Number: PHHY2014BR040988

PATIENT
  Age: 68 Year
  Sex: Female
  Weight: 70 kg

DRUGS (6)
  1. RAZAPINA [Suspect]
     Indication: ACCIDENTAL EXPOSURE TO PRODUCT
     Dosage: 30 MG, QD
     Route: 048
     Dates: start: 201403, end: 20140328
  2. QUETIAPINE SANDOZ [Concomitant]
     Indication: DEPRESSION
     Dosage: 25 MG, QD
     Route: 048
  3. MICARDIS HCT [Concomitant]
     Indication: HYPERTENSION
     Dosage: 1 TABLET PER DAY IN THE MORNING
  4. VENLAFAXINE [Concomitant]
     Indication: DEPRESSION
     Dosage: 1 TABLET PER DAY AT NIGHT
     Route: 048
  5. RIVOTRIL [Concomitant]
     Indication: DEPRESSION
     Dosage: 1 TABLET PER DAY AT NIGHT
     Route: 048
  6. NEOTIAPIM [Concomitant]
     Indication: DEPRESSION
     Dosage: 25MG AT NIGHT

REACTIONS (6)
  - Dizziness [Recovering/Resolving]
  - Tremor [Recovering/Resolving]
  - Feeling cold [Recovering/Resolving]
  - Gait disturbance [Recovering/Resolving]
  - Malaise [Recovering/Resolving]
  - Wrong patient received medication [Recovered/Resolved]
